FAERS Safety Report 4990307-1 (Version None)
Quarter: 2006Q2

REPORT INFORMATION
  Report Type: 
  Country: None (occurrence: None)
  Receive Date: 20060501
  Receipt Date: 20060501
  Transmission Date: 20061013
  Serious: Yes (Other)
  Sender: FDA-Public Use
  Company Number: None

PATIENT
  Age: 16 Year
  Sex: Female
  Weight: 44.9061 kg

DRUGS (1)
  1. AMNESTEEM [Suspect]
     Indication: ACNE
     Dosage: 1 ONCE A DAY PO
     Route: 048
     Dates: start: 20051120, end: 20060315

REACTIONS (14)
  - ABNORMAL BEHAVIOUR [None]
  - ANOREXIA [None]
  - DEPRESSION [None]
  - EDUCATIONAL PROBLEM [None]
  - HYPERSOMNIA [None]
  - INJURY [None]
  - INSOMNIA [None]
  - IRRITABILITY [None]
  - LETHARGY [None]
  - SOCIAL AVOIDANT BEHAVIOUR [None]
  - SUICIDAL IDEATION [None]
  - SUICIDE ATTEMPT [None]
  - VOMITING [None]
  - WEIGHT DECREASED [None]
